FAERS Safety Report 10399062 (Version 1)
Quarter: 2014Q3

REPORT INFORMATION
  Report Type: Spontaneous
  Country: JP (occurrence: None)
  Receive Date: 20140819
  Receipt Date: 20140819
  Transmission Date: 20150326
  Serious: Yes (Other)
  Sender: FDA-Public Use
  Company Number: AE-SPE-2014-027

PATIENT
  Age: 53 Year
  Sex: Male

DRUGS (2)
  1. VICCILLIN [Suspect]
     Active Substance: AMPICILLIN
     Route: 042
     Dates: start: 201312, end: 201312
  2. MEIACT MS [Suspect]
     Active Substance: CEFDITOREN PIVOXIL
     Route: 048
     Dates: start: 201312, end: 201312

REACTIONS (1)
  - Drug eruption [None]
